FAERS Safety Report 23425864 (Version 1)
Quarter: 2024Q1

REPORT INFORMATION
  Report Type: Other
  Country: CN (occurrence: None)
  Receive Date: 20240122
  Receipt Date: 20240122
  Transmission Date: 20240410
  Serious: Yes (Hospitalization)
  Sender: FDA-Public Use
  Company Number: CN-ROCHE-3492186

PATIENT
  Age: 55 Year
  Sex: Female

DRUGS (12)
  1. BEVACIZUMAB [Suspect]
     Active Substance: BEVACIZUMAB
     Indication: Rectal cancer recurrent
     Route: 065
  2. OXALIPLATIN [Suspect]
     Active Substance: OXALIPLATIN
     Indication: Rectal cancer recurrent
     Route: 065
     Dates: start: 2016
  3. OXALIPLATIN [Suspect]
     Active Substance: OXALIPLATIN
     Route: 065
     Dates: start: 2020
  4. CAPECITABINE [Suspect]
     Active Substance: CAPECITABINE
     Indication: Rectal cancer recurrent
     Route: 065
     Dates: start: 2016
  5. LEUCOVORIN [Concomitant]
     Active Substance: LEUCOVORIN\LEUCOVORIN CALCIUM
     Dates: start: 2020
  6. FLUOROURACIL [Concomitant]
     Active Substance: FLUOROURACIL
     Dates: start: 2020
  7. CETUXIMAB [Concomitant]
     Active Substance: CETUXIMAB
     Dosage: FOR 6 CYCLES,
     Dates: start: 2020
  8. IRINOTECAN HYDROCHLORIDE [Concomitant]
     Active Substance: IRINOTECAN HYDROCHLORIDE
     Dates: start: 2020
  9. FRUQUINTINIB [Concomitant]
     Active Substance: FRUQUINTINIB
     Route: 048
     Dates: start: 202203
  10. FRUQUINTINIB [Concomitant]
     Active Substance: FRUQUINTINIB
     Dosage: COMPLETED 18 CYCLES OF THE REGIMEN
     Dates: start: 20220506
  11. PARAFFIN OIL [Concomitant]
     Dates: start: 20220409
  12. SINDILIZUMAB [Concomitant]
     Dosage: COMPLETED 18 CYCLES OF THE REGIMEN
     Dates: start: 20220506

REACTIONS (1)
  - Disease progression [Recovering/Resolving]

NARRATIVE: CASE EVENT DATE: 20220301
